FAERS Safety Report 9492192 (Version 2)
Quarter: 2013Q4

REPORT INFORMATION
  Report Type: Spontaneous
  Country: GB (occurrence: None)
  Receive Date: 20130827
  Receipt Date: 20131209
  Transmission Date: 20140711
  Serious: Yes (Hospitalization)
  Sender: FDA-Public Use
  Company Number: 1856744

PATIENT
  Age: 44 Year
  Sex: Female

DRUGS (16)
  1. DOCETAXEL [Suspect]
     Indication: HER-2 POSITIVE BREAST CANCER
     Dosage: 150 MG, 1 WEEK, INTRAVENOUS (NOT OTHERWISE SPECIFIED)
     Route: 042
     Dates: start: 20121009
  2. PACLITAXEL [Suspect]
     Indication: HER-2 POSITIVE BREAST CANCER
     Dosage: 160 MG, 1 WEEK
     Dates: start: 20130621
  3. IBANDRONIC ACID [Concomitant]
  4. LANSOPRAZOLE [Concomitant]
  5. FUROSEMIDE [Concomitant]
  6. DEXAMETHASONE [Concomitant]
  7. IBUPROFEN [Concomitant]
  8. SODIUM ALGINATE W/SODIUM BICARBONATE [Concomitant]
  9. METHYLPREDNISOLONE [Concomitant]
  10. LOPERAMIDE [Concomitant]
  11. BEMIPARIN SODIUM [Concomitant]
  12. PARACETAMOL [Concomitant]
  13. RANITIDINE [Concomitant]
  14. DEXCHLORPHENIRAMINE [Concomitant]
  15. PERTUZUMAB [Concomitant]
  16. TRASTUZUMAB [Concomitant]

REACTIONS (5)
  - Dyspnoea [None]
  - Neutropenic sepsis [None]
  - Staphylococcus test positive [None]
  - Blood pH increased [None]
  - Haematotoxicity [None]
